FAERS Safety Report 4972110-1 (Version None)
Quarter: 2006Q2

REPORT INFORMATION
  Report Type: 
  Country: None (occurrence: None)
  Receive Date: 20060412
  Receipt Date: 20060412
  Transmission Date: 20061013
  Serious: No
  Sender: FDA-Public Use
  Company Number: None

PATIENT
  Sex: Male
  Weight: 77 kg

DRUGS (2)
  1. CYTARABINE [Suspect]
     Indication: ACUTE MYELOID LEUKAEMIA
     Dosage: 1246 MG
     Dates: start: 20060329, end: 20060405
  2. DAUNORUBICIN HCL [Suspect]
     Dosage: 480 MG
     Dates: start: 20060329, end: 20060331

REACTIONS (19)
  - ABDOMINAL PAIN UPPER [None]
  - ASPIRATION [None]
  - ATRIAL FIBRILLATION [None]
  - BLOOD BILIRUBIN INCREASED [None]
  - COAGULOPATHY [None]
  - COUGH [None]
  - DEPRESSED LEVEL OF CONSCIOUSNESS [None]
  - DILATATION VENTRICULAR [None]
  - DYSPNOEA [None]
  - GASTROINTESTINAL HAEMORRHAGE [None]
  - JAUNDICE [None]
  - LIVER FUNCTION TEST ABNORMAL [None]
  - MUCOSAL INFLAMMATION [None]
  - NEUTROPENIA [None]
  - ORAL PAIN [None]
  - PYREXIA [None]
  - SEPSIS [None]
  - SPUTUM DISCOLOURED [None]
  - THROMBOSIS [None]
